FAERS Safety Report 9292693 (Version 2)
Quarter: 2013Q2

REPORT INFORMATION
  Report Type: Spontaneous
  Country: US (occurrence: US)
  Receive Date: 20130516
  Receipt Date: 20130531
  Transmission Date: 20140414
  Serious: No
  Sender: FDA-Public Use
  Company Number: US-VERTEX PHARMACEUTICALS INC-2013-006043

PATIENT
  Sex: Female

DRUGS (6)
  1. INCIVEK [Suspect]
     Indication: HEPATITIS C
     Route: 048
  2. PEGINTERFERON [Suspect]
     Indication: HEPATITIS C
  3. RIBAVIRIN [Suspect]
     Indication: HEPATITIS C
  4. SAPHRIS [Concomitant]
  5. PRISTIQ [Concomitant]
  6. MULTIVITAMIN [Concomitant]

REACTIONS (2)
  - Menorrhagia [Recovered/Resolved]
  - Platelet count decreased [Unknown]
